FAERS Safety Report 5220020-7 (Version None)
Quarter: 2007Q1

REPORT INFORMATION
  Report Type: 
  Country: None (occurrence: None)
  Receive Date: 20070124
  Receipt Date: 20070124
  Transmission Date: 20070707
  Serious: Yes (Other)
  Sender: FDA-Public Use
  Company Number: None

PATIENT
  Age: 91 Year
  Sex: Male
  Weight: 87.3 kg

DRUGS (3)
  1. GABAPENTIN [Suspect]
  2. CLOTRIMAZOLE [Concomitant]
  3. SILVER SULFADIAZINE [Concomitant]

REACTIONS (2)
  - FATIGUE [None]
  - VISION BLURRED [None]
